FAERS Safety Report 13014970 (Version 5)
Quarter: 2018Q4

REPORT INFORMATION
  Report Type: Report from Study
  Country: US (occurrence: US)
  Receive Date: 20161210
  Receipt Date: 20181213
  Transmission Date: 20190204
  Serious: Yes (Hospitalization, Other)
  Sender: FDA-Public Use
  Company Number: US-BAXTER-2016BAX061467

PATIENT
  Age: 13 Year
  Sex: Female
  Weight: 41 kg

DRUGS (25)
  1. METHOTREXATE. [Suspect]
     Active Substance: METHOTREXATE
     Dosage: REGIMEN# 1, LAST DOSE PRIOR TO THE EVENT OF PYOMYOSITIS
     Route: 042
     Dates: start: 20161022
  2. ACETAMINOPHEN. [Concomitant]
     Active Substance: ACETAMINOPHEN
     Indication: PRODUCT USED FOR UNKNOWN INDICATION
     Route: 065
  3. CEPHAZOLIN [Concomitant]
     Active Substance: CEFAZOLIN
     Indication: PRODUCT USED FOR UNKNOWN INDICATION
     Route: 065
     Dates: start: 20160930, end: 20160930
  4. DIPHENHYDRAMINE. [Concomitant]
     Active Substance: DIPHENHYDRAMINE
     Indication: PRODUCT USED FOR UNKNOWN INDICATION
     Route: 065
     Dates: start: 20160930
  5. VINCRISTINE [Suspect]
     Active Substance: VINCRISTINE
     Dosage: REGIMEN# 1, LAST DOSE PRIOR TO SERIOUS ADVERSE EVENT OF PYOMYOSITIS
     Route: 042
     Dates: start: 20161022
  6. HYDROCODONE BITARTRATE AND ACETAMINOPHEN [Concomitant]
     Active Substance: ACETAMINOPHEN\HYDROCODONE BITARTRATE
     Indication: PRODUCT USED FOR UNKNOWN INDICATION
     Route: 065
     Dates: start: 20160930, end: 20160930
  7. ONDANSETRON [Concomitant]
     Active Substance: ONDANSETRON
     Indication: PRODUCT USED FOR UNKNOWN INDICATION
     Route: 065
     Dates: start: 20160930, end: 20160930
  8. OXYCODONE [Concomitant]
     Active Substance: OXYCODONE
     Indication: PRODUCT USED FOR UNKNOWN INDICATION
     Route: 065
     Dates: start: 20160930
  9. VINCRISTINE [Suspect]
     Active Substance: VINCRISTINE
     Indication: B PRECURSOR TYPE ACUTE LEUKAEMIA
     Dosage: DAYS 5, 22; LAST DOSE PRIOR TO SAE, REGIMEN# 1
     Route: 042
     Dates: start: 20161014
  10. METHOTREXATE. [Suspect]
     Active Substance: METHOTREXATE
     Indication: B PRECURSOR TYPE ACUTE LEUKAEMIA
     Dosage: REGIMEN# 1, DAYS 1, 8, 15, 22; LAST DOSE PRIOR TO EVENT
     Route: 042
     Dates: start: 20160930
  11. MERCAPTOPURINE. [Suspect]
     Active Substance: MERCAPTOPURINE
     Indication: B PRECURSOR TYPE ACUTE LEUKAEMIA
     Dosage: MONDAY-FRIDAY (ON DAYS 1-14), REGIMEN# 1
     Route: 048
     Dates: start: 20161013
  12. CYTARABINE. [Suspect]
     Active Substance: CYTARABINE
     Indication: B PRECURSOR TYPE ACUTE LEUKAEMIA
     Dosage: DAYS 1-4 AND 8-11, REGIMEN# 1
     Route: 058
     Dates: start: 20160930
  13. INCB018424 [Suspect]
     Active Substance: RUXOLITINIB
     Dosage: REGIMEN#2, TABLET
     Route: 048
     Dates: start: 20161129
  14. MIDAZOLAM [Concomitant]
     Active Substance: MIDAZOLAM HYDROCHLORIDE
     Indication: PRODUCT USED FOR UNKNOWN INDICATION
     Route: 065
     Dates: end: 20161007
  15. MERCAPTOPURINE. [Suspect]
     Active Substance: MERCAPTOPURINE
     Dosage: SATURDAY-SUNDAY (ON DAYS 1-14), REGIMEN# 1
     Route: 048
  16. MORPHINE [Concomitant]
     Active Substance: MORPHINE
     Indication: PRODUCT USED FOR UNKNOWN INDICATION
     Route: 065
     Dates: start: 20160930, end: 20161007
  17. CYCLOPHOSPHAMIDE FOR INJECTION, USP [Suspect]
     Active Substance: CYCLOPHOSPHAMIDE
     Dosage: DAY 1, 29; FIRST DOSE
     Route: 042
     Dates: start: 20160913
  18. CYTARABINE. [Suspect]
     Active Substance: CYTARABINE
     Dosage: REGIMEN# 1, LAST DOSE PRIOR TO SERIOUS ADVERSE EVENT
     Route: 058
     Dates: start: 20161010
  19. INCB018424 [Suspect]
     Active Substance: RUXOLITINIB
     Indication: B PRECURSOR TYPE ACUTE LEUKAEMIA
     Dosage: LAST DOSE PRIOR TO EVENT ON 13OCT2016, REGIMEN#1, TABLET
     Route: 048
     Dates: start: 20160930, end: 20161013
  20. MERCAPTOPURINE. [Suspect]
     Active Substance: MERCAPTOPURINE
     Dosage: DAY 14, LAST DOSE PRIOR TO SERIOUS ADVERSE EVENT, REGIMEN# 1
     Route: 048
     Dates: start: 20161013, end: 20161013
  21. PROPOFOL. [Concomitant]
     Active Substance: PROPOFOL
     Indication: PRODUCT USED FOR UNKNOWN INDICATION
     Route: 065
     Dates: start: 20160930, end: 20160930
  22. KETAMINE [Concomitant]
     Active Substance: KETAMINE
     Indication: PRODUCT USED FOR UNKNOWN INDICATION
     Route: 065
     Dates: start: 20161015, end: 20161015
  23. CYCLOPHOSPHAMIDE FOR INJECTION, USP [Suspect]
     Active Substance: CYCLOPHOSPHAMIDE
     Indication: B PRECURSOR TYPE ACUTE LEUKAEMIA
     Dosage: DAY 1, 29; LAST DOSE PRIOR TO THE EVENT, REGIMEN#1
     Route: 042
     Dates: start: 20160930
  24. INCB018424 [Suspect]
     Active Substance: RUXOLITINIB
     Dosage: INTERRUPTED
     Route: 048
     Dates: end: 20161029
  25. PEGASPARGASE [Suspect]
     Active Substance: PEGASPARGASE
     Indication: B PRECURSOR TYPE ACUTE LEUKAEMIA
     Dosage: DAY 15; REGIMEN#1, LAST DOSE PRIOR TO SAE
     Route: 042
     Dates: start: 20161014

REACTIONS (9)
  - Pleural effusion [Recovered/Resolved]
  - Hypokalaemia [Unknown]
  - Blood immunoglobulin G decreased [Recovered/Resolved]
  - Pneumonia necrotising [Recovered/Resolved]
  - Pancytopenia [Unknown]
  - Blood immunoglobulin A decreased [Recovered/Resolved]
  - Pyomyositis [Recovered/Resolved]
  - Febrile neutropenia [Recovered/Resolved]
  - Cellulitis [Unknown]

NARRATIVE: CASE EVENT DATE: 20161025
